FAERS Safety Report 18490310 (Version 3)
Quarter: 2023Q4

REPORT INFORMATION
  Report Type: Report from Study
  Country: US (occurrence: US)
  Receive Date: 20201111
  Receipt Date: 20231017
  Transmission Date: 20240110
  Serious: Yes (Hospitalization)
  Sender: FDA-Public Use
  Company Number: US-JNJFOC-20200803766

PATIENT
  Age: 33 Year
  Sex: Female
  Weight: 50 kg

DRUGS (13)
  1. SIMPONI [Suspect]
     Active Substance: GOLIMUMAB
     Indication: Colitis ulcerative
     Route: 058
     Dates: start: 20190521, end: 20190902
  2. PREDNISOLONE [Concomitant]
     Active Substance: PREDNISOLONE
     Dates: start: 20200501
  3. PREDNISOLONE [Concomitant]
     Active Substance: PREDNISOLONE
     Dates: start: 20221115, end: 202212
  4. PREDNISOLONE [Concomitant]
     Active Substance: PREDNISOLONE
     Dates: start: 202212, end: 20230115
  5. PREDNISOLONE [Concomitant]
     Active Substance: PREDNISOLONE
     Dates: start: 20230116
  6. REMICADE [Concomitant]
     Active Substance: INFLIXIMAB
     Dates: start: 20200527
  7. MESALAMINE [Concomitant]
     Active Substance: MESALAMINE
     Dates: start: 201810, end: 20200227
  8. MESALAMINE [Concomitant]
     Active Substance: MESALAMINE
     Dates: start: 201809, end: 20191001
  9. BUDESONIDE [Concomitant]
     Active Substance: BUDESONIDE
     Dates: start: 20191022, end: 20191211
  10. VEDOLIZUMAB [Concomitant]
     Active Substance: VEDOLIZUMAB
     Dates: start: 20191001, end: 20200423
  11. MEDROL [Concomitant]
     Active Substance: METHYLPREDNISOLONE
     Dates: start: 20200804, end: 202012
  12. XELJANZ [Concomitant]
     Active Substance: TOFACITINIB CITRATE
     Dates: start: 202011, end: 20221121
  13. FOLIC ACID [Concomitant]
     Active Substance: FOLIC ACID
     Dates: start: 20230115

REACTIONS (1)
  - Colitis ulcerative [Recovered/Resolved]

NARRATIVE: CASE EVENT DATE: 20200727
